FAERS Safety Report 8130064-3 (Version None)
Quarter: 2012Q1

REPORT INFORMATION
  Report Type: 
  Country: None (occurrence: None)
  Receive Date: 20120210
  Receipt Date: 20120130
  Transmission Date: 20120608
  Serious: Yes (Other)
  Sender: FDA-Public Use
  Company Number: CHPA2012CA002415

PATIENT
  Age: 60 Year
  Sex: Male

DRUGS (3)
  1. BUCKLEY'S UNKNOWN [Suspect]
     Indication: COUGH
     Dosage: UNK, UNK
     Route: 048
  2. BUCKLEY'S WHITE RUB [Suspect]
     Dosage: UNK, UNK
     Route: 061
  3. ROBITUSSIN ^WYETH^ [Suspect]
     Indication: COUGH
     Dosage: UNK, UNK
     Dates: end: 20120101

REACTIONS (4)
  - MUSCULOSKELETAL PAIN [None]
  - UPPER LIMB FRACTURE [None]
  - ORAL DISCOMFORT [None]
  - FALL [None]
